FAERS Safety Report 5452179-0 (Version None)
Quarter: 2007Q3

REPORT INFORMATION
  Report Type: 
  Country: None (occurrence: None)
  Receive Date: 20070912
  Receipt Date: 20070907
  Transmission Date: 20080115
  Serious: Yes (Other)
  Sender: FDA-Public Use
  Company Number: 2007328794

PATIENT
  Age: 86 Year
  Sex: Male
  Weight: 72.6 kg

DRUGS (2)
  1. BENADRYL [Suspect]
     Indication: PRURITUS
     Dosage: 3 TIMES OVER 48 HOURS, ORAL
     Route: 048
     Dates: start: 20070814, end: 20070816
  2. CHLOR-TRIMETON [Concomitant]

REACTIONS (3)
  - CONFUSIONAL STATE [None]
  - DISCOMFORT [None]
  - IRRITABILITY [None]
